FAERS Safety Report 10349921 (Version 1)
Quarter: 2014Q3

REPORT INFORMATION
  Report Type: Spontaneous
  Country: US (occurrence: US)
  Receive Date: 20140730
  Receipt Date: 20140730
  Transmission Date: 20150326
  Serious: Yes (Other)
  Sender: FDA-Public Use
  Company Number: US-JNJFOC-20140620809

PATIENT
  Sex: Female

DRUGS (2)
  1. TOPAMAX [Suspect]
     Active Substance: TOPIRAMATE
     Indication: MIGRAINE
     Route: 048
     Dates: start: 1994
  2. TOPAMAX [Suspect]
     Active Substance: TOPIRAMATE
     Indication: ELECTROENCEPHALOGRAM ABNORMAL
     Route: 048
     Dates: start: 1994

REACTIONS (3)
  - Surgery [Unknown]
  - Gait disturbance [Unknown]
  - Adverse event [Unknown]
